FAERS Safety Report 15735673 (Version 1)
Quarter: 2018Q4

REPORT INFORMATION
  Report Type: Spontaneous
  Country: IT (occurrence: IT)
  Receive Date: 20181218
  Receipt Date: 20181218
  Transmission Date: 20190205
  Serious: No
  Sender: FDA-Public Use
  Company Number: IT-B. BRAUN MEDICAL INC.-2060310

PATIENT
  Age: 87 Year
  Sex: Female
  Weight: 77 kg

DRUGS (3)
  1. PARACETAMOL [Concomitant]
     Active Substance: ACETAMINOPHEN
     Route: 042
     Dates: start: 20171002, end: 20171004
  2. CEFAZOLIN SODIUM. [Concomitant]
     Active Substance: CEFAZOLIN SODIUM
     Route: 042
     Dates: start: 20171002, end: 20171004
  3. METRONIDAZOLE INJECTION USP (5 MG/ML) IN PAB? PLASTIC CONTAINER (NDA 0 [Suspect]
     Active Substance: METRONIDAZOLE
     Indication: OSTEONECROSIS OF JAW
     Route: 042
     Dates: start: 20171002, end: 20171003

REACTIONS (2)
  - Urticaria [Recovered/Resolved]
  - Skin reaction [Recovered/Resolved]

NARRATIVE: CASE EVENT DATE: 20171003
